FAERS Safety Report 5537922-4 (Version None)
Quarter: 2007Q4

REPORT INFORMATION
  Report Type: 
  Country: None (occurrence: None)
  Receive Date: 20071207
  Receipt Date: 20071204
  Transmission Date: 20080405
  Serious: Yes (Other)
  Sender: FDA-Public Use
  Company Number: US-ROXANE LABORATORIES, INC-2007-BP-25562RO

PATIENT
  Age: 23 Year
  Sex: Male

DRUGS (4)
  1. PREDNISONE TAB [Suspect]
     Indication: NEPHROTIC SYNDROME
     Route: 048
  2. CELLCEPT [Concomitant]
     Indication: NEPHROTIC SYNDROME
  3. CYCLOSPORINE [Concomitant]
     Indication: NEPHROTIC SYNDROME
  4. ANTIBIOTICS [Concomitant]
     Indication: INFECTION

REACTIONS (5)
  - DRUG INEFFECTIVE [None]
  - PSEUDOMONAS INFECTION [None]
  - RENAL FAILURE CHRONIC [None]
  - SKIN STRIAE [None]
  - STAPHYLOCOCCAL INFECTION [None]
